FAERS Safety Report 5284566-8 (Version None)
Quarter: 2007Q2

REPORT INFORMATION
  Report Type: 
  Country: None (occurrence: None)
  Receive Date: 20070403
  Receipt Date: 20070329
  Transmission Date: 20071010
  Serious: Yes (Life-Threatening)
  Sender: FDA-Public Use
  Company Number: DE-GLAXOSMITHKLINE-D0052782A

PATIENT
  Age: 65 Year
  Sex: Male
  Weight: 83 kg

DRUGS (2)
  1. AVANDAMET [Suspect]
     Route: 048
  2. DIET [Concomitant]
     Route: 065

REACTIONS (1)
  - HAEMOLYTIC ANAEMIA [None]
